FAERS Safety Report 4804786-3 (Version None)
Quarter: 2005Q4

REPORT INFORMATION
  Report Type: 
  Country: None (occurrence: None)
  Receive Date: 20051017
  Receipt Date: 20051013
  Transmission Date: 20060501
  Serious: Yes (Hospitalization)
  Sender: FDA-Public Use
  Company Number: 200511535BWH

PATIENT

DRUGS (1)
  1. AVELOX [Suspect]
     Dosage: 400 MG, BID, ORAL
     Route: 048

REACTIONS (2)
  - ELECTROCARDIOGRAM ST SEGMENT ABNORMAL [None]
  - OVERDOSE [None]
